FAERS Safety Report 7801563-6 (Version None)
Quarter: 2011Q4

REPORT INFORMATION
  Report Type: 
  Country: None (occurrence: None)
  Receive Date: 20111007
  Receipt Date: 20110928
  Transmission Date: 20120403
  Serious: Yes (Other)
  Sender: FDA-Public Use
  Company Number: FR-JNJFOC-20110306516

PATIENT
  Age: 43 Year
  Sex: Female
  Weight: 64 kg

DRUGS (10)
  1. REMICADE [Suspect]
     Indication: GASTROINTESTINAL INFLAMMATION
     Route: 042
     Dates: start: 20110217
  2. SERTRALINE HYDROCHLORIDE [Concomitant]
     Indication: DEPRESSION
     Dosage: ASSOCIATED WITH INFLIXIMAB
     Dates: start: 20110110
  3. LORAZEPAM [Concomitant]
  4. REMICADE [Suspect]
     Route: 042
     Dates: start: 20110217
  5. METHOTREXATE [Concomitant]
     Dates: start: 20110215
  6. REMICADE [Suspect]
     Indication: SPONDYLOARTHROPATHY
     Route: 042
     Dates: start: 20110303
  7. PREDNISONE [Concomitant]
  8. REMICADE [Suspect]
     Route: 042
     Dates: start: 20110303
  9. ISONIAZID [Concomitant]
     Indication: TUBERCULOSIS
     Dosage: PLANNED TO BE DISCONTINUED 09-JAN-2011
     Dates: start: 20110109
  10. RIFADIN [Concomitant]
     Indication: TUBERCULOSIS
     Dosage: PLANNED TO BE DISCONTINUES 09-APR-2011
     Dates: start: 20110109

REACTIONS (13)
  - ASTHENIA [None]
  - HOT FLUSH [None]
  - VERTIGO [None]
  - HEADACHE [None]
  - NAUSEA [None]
  - INFLAMMATORY PAIN [None]
  - INFUSION RELATED REACTION [None]
  - FLUSHING [None]
  - CHEST DISCOMFORT [None]
  - HYPOTENSION [None]
  - DIARRHOEA [None]
  - MYALGIA [None]
  - VOMITING [None]
